FAERS Safety Report 12737995 (Version 1)
Quarter: 2016Q3

REPORT INFORMATION
  Report Type: Spontaneous
  Country: US (occurrence: US)
  Receive Date: 20160912
  Receipt Date: 20160912
  Transmission Date: 20161109
  Serious: Yes (Other)
  Sender: FDA-Public Use
  Company Number: US-SA-2016SA113241

PATIENT
  Age: 68 Year
  Sex: Male
  Weight: 78.47 kg

DRUGS (8)
  1. LISINOPRIL. [Concomitant]
     Active Substance: LISINOPRIL
     Indication: HYPERTENSION
     Dosage: STARTED 4-5 YEARS AGO
  2. SOLOSTAR [Concomitant]
     Active Substance: DEVICE
     Dates: start: 201604
  3. LISINOPRIL. [Concomitant]
     Active Substance: LISINOPRIL
     Indication: NEPHROPROTECTIVE THERAPY
     Dosage: STARTED 4-5 YEARS AGO
  4. NEURONTIN [Concomitant]
     Active Substance: GABAPENTIN
     Indication: PAIN
  5. CRESTOR [Concomitant]
     Active Substance: ROSUVASTATIN CALCIUM
     Indication: BLOOD CHOLESTEROL
     Dosage: STARTED 4-5 YEARS AGO
  6. COREG [Concomitant]
     Active Substance: CARVEDILOL
     Indication: HYPERTENSION
     Dosage: STARTED 4-5 YEARS AGO
  7. TOUJEO [Suspect]
     Active Substance: INSULIN GLARGINE
     Indication: TYPE 1 DIABETES MELLITUS
     Dosage: DOSE: 12-40 UNITS
     Route: 065
     Dates: start: 20160228, end: 20160621
  8. AFREZZA [Concomitant]
     Active Substance: INSULIN HUMAN
     Indication: DIABETES MELLITUS
     Route: 065
     Dates: start: 20160228, end: 20160621

REACTIONS (3)
  - Blood glucose increased [Recovered/Resolved]
  - Hypoglycaemia [Unknown]
  - Drug ineffective [Unknown]
